FAERS Safety Report 18570232 (Version 1)
Quarter: 2020Q4

REPORT INFORMATION
  Report Type: Spontaneous
  Country: DE (occurrence: DE)
  Receive Date: 20201202
  Receipt Date: 20201202
  Transmission Date: 20210114
  Serious: Yes (Death, Other)
  Sender: FDA-Public Use
  Company Number: DE-PFIZER INC-2020472867

PATIENT
  Age: 63 Year
  Sex: Female

DRUGS (8)
  1. EXEMESTANE. [Suspect]
     Active Substance: EXEMESTANE
     Indication: BREAST CANCER METASTATIC
     Dosage: UNK (WITH BEVACIZUMAB)
     Route: 065
     Dates: start: 2014, end: 2015
  2. CAPECITABINE. [Suspect]
     Active Substance: CAPECITABINE
     Indication: BREAST CANCER METASTATIC
     Dosage: UNK
     Route: 048
  3. BEVACIZUMAB. [Suspect]
     Active Substance: BEVACIZUMAB
     Indication: BREAST CANCER METASTATIC
     Dosage: UNK (WITH PACLITAXEL, FOR 12 WEEKS)
     Route: 042
     Dates: start: 2014, end: 2014
  4. TALAZOPARIB TOSYLATE [Concomitant]
     Active Substance: TALAZOPARIB TOSYLATE
     Dosage: 7.5 MG, 1X/DAY
     Dates: start: 2017
  5. GEMCITABINE. [Concomitant]
     Active Substance: GEMCITABINE
     Dosage: UNK
  6. CARBOPLATIN. [Concomitant]
     Active Substance: CARBOPLATIN
     Dosage: UNK
  7. PACLITAXEL. [Suspect]
     Active Substance: PACLITAXEL
     Indication: BREAST CANCER METASTATIC
     Dosage: UNK (WITH BEVACIZUMAB, FOR 12 WEEKS)
     Route: 065
     Dates: start: 2014, end: 2014
  8. BEVACIZUMAB. [Suspect]
     Active Substance: BEVACIZUMAB
     Dosage: UNK (WITH EXEMESTANE)
     Route: 042
     Dates: start: 2014, end: 2015

REACTIONS (2)
  - Anaemia [Recovered/Resolved]
  - Death [Fatal]

NARRATIVE: CASE EVENT DATE: 20170101
